FAERS Safety Report 5047665-1 (Version None)
Quarter: 2006Q3

REPORT INFORMATION
  Report Type: 
  Country: None (occurrence: None)
  Receive Date: 20060711
  Receipt Date: 20060703
  Transmission Date: 20061208
  Serious: Yes (Disabling)
  Sender: FDA-Public Use
  Company Number: US-NOVOPROD-254601

PATIENT
  Age: 72 Year
  Sex: Female
  Weight: 59 kg

DRUGS (4)
  1. PHENYTOIN [Concomitant]
     Indication: CONVULSION
     Route: 042
  2. NOVOSEVEN [Suspect]
     Indication: CEREBRAL HAEMORRHAGE
     Dosage: 1 DOSE
     Route: 042
     Dates: start: 20060625, end: 20060625
  3. ONDANSETRON HCL [Concomitant]
     Indication: VOMITING
     Dosage: 4 MG, QD
     Route: 042
     Dates: start: 20060625
  4. ACETAMINOPHEN [Concomitant]
     Indication: PYREXIA
     Dosage: 650 MG, QD
     Route: 048
     Dates: start: 20060627, end: 20060627

REACTIONS (3)
  - CEREBRAL INFARCTION [None]
  - COMA [None]
  - MENTAL IMPAIRMENT [None]
